FAERS Safety Report 8329450-8 (Version None)
Quarter: 2012Q2

REPORT INFORMATION
  Report Type: 
  Country: None (occurrence: None)
  Receive Date: 20120502
  Receipt Date: 20120424
  Transmission Date: 20120825
  Serious: Yes (Hospitalization)
  Sender: FDA-Public Use
  Company Number: US-ROCHE-CID000000001986059

PATIENT
  Sex: Female

DRUGS (4)
  1. VEMURAFENIB [Suspect]
     Route: 048
     Dates: start: 20120302, end: 20120322
  2. VEMURAFENIB [Suspect]
     Route: 048
     Dates: start: 20120326
  3. VEMURAFENIB [Suspect]
     Indication: MALIGNANT MELANOMA
     Route: 048
     Dates: start: 20120202, end: 20120223
  4. IPILIMUMAB [Suspect]
     Indication: MALIGNANT MELANOMA
     Dosage: LAST DOSE ADMINISTERED ON 02/MAR/2012
     Route: 042
     Dates: start: 20120302

REACTIONS (1)
  - HEPATOTOXICITY [None]
